FAERS Safety Report 5779532-X (Version None)
Quarter: 2008Q2

REPORT INFORMATION
  Report Type: 
  Country: None (occurrence: None)
  Receive Date: 20080619
  Receipt Date: 20080607
  Transmission Date: 20081010
  Serious: Yes (Other)
  Sender: FDA-Public Use
  Company Number: US-PFIZER INC-2008042643

PATIENT
  Sex: Female
  Weight: 92.7 kg

DRUGS (5)
  1. CHANTIX [Suspect]
     Indication: SMOKING CESSATION THERAPY
     Route: 048
  2. EFFEXOR [Interacting]
     Indication: ANXIETY
  3. EFFEXOR [Interacting]
     Indication: DEPRESSION
  4. ZOCOR [Concomitant]
     Indication: BLOOD CHOLESTEROL INCREASED
  5. LISINOPRIL [Concomitant]
     Indication: HYPERTENSION

REACTIONS (4)
  - ANXIETY [None]
  - DEPRESSION [None]
  - DRUG EFFECT DECREASED [None]
  - DRUG INTERACTION [None]
